FAERS Safety Report 6461982-X (Version None)
Quarter: 2009Q4

REPORT INFORMATION
  Report Type: 
  Country: None (occurrence: None)
  Receive Date: 20091123
  Receipt Date: 20091109
  Transmission Date: 20100525
  Serious: Yes (Death)
  Sender: FDA-Public Use
  Company Number: 2009AC000400

PATIENT
  Age: 72 Year
  Sex: Female

DRUGS (73)
  1. DIGOXIN [Suspect]
     Dosage: 0.125 MG;QD;PO
     Route: 048
     Dates: start: 20061024, end: 20070601
  2. ZINC SULFATE [Concomitant]
  3. AMBIEN [Concomitant]
  4. PREMARIN [Concomitant]
  5. HYDROCODONE [Concomitant]
  6. COREG [Concomitant]
  7. ISOSORBIDE [Concomitant]
  8. TERAZOSIN HCL [Concomitant]
  9. POTASSIUM CHLORIDE [Concomitant]
  10. HYDRALAZINE HCL [Concomitant]
  11. METOCLOPRAMIDE [Concomitant]
  12. DIATX [Concomitant]
  13. PREVACID [Concomitant]
  14. GLYCOLAX [Concomitant]
  15. COZAAR [Concomitant]
  16. WARFARIN SODIUM [Concomitant]
  17. NORVASC [Concomitant]
  18. CARAFATE [Concomitant]
  19. ZOLPIDEM [Concomitant]
  20. LIPITOR [Concomitant]
  21. CARISOPRODOL [Concomitant]
  22. OMEPRAZOLE [Concomitant]
  23. FOLBEE PLUS [Concomitant]
  24. FUROSEMIDE [Concomitant]
  25. VYTORIN [Concomitant]
  26. DOXAZOSIN MESYLATE [Concomitant]
  27. BUMETANIDE [Concomitant]
  28. PROTONIX [Concomitant]
  29. ZOLOFT [Concomitant]
  30. HYDRO-TUSSIN HC [Concomitant]
  31. PATANOL [Concomitant]
  32. TOBRADEX [Concomitant]
  33. AZITHROMYCIN [Concomitant]
  34. NEXIUM [Concomitant]
  35. SOTALOL HCL [Concomitant]
  36. CARVEDILOL [Concomitant]
  37. CEPHALEXIN [Concomitant]
  38. PROPPXY-N/APAP [Concomitant]
  39. PAROXETINE HCL [Concomitant]
  40. ZOLPIDEM TARTRATE [Concomitant]
  41. ALBUTEROL [Concomitant]
  42. BENZONATATE [Concomitant]
  43. LEVAQUIN [Concomitant]
  44. PREDNISONE [Concomitant]
  45. SULFAMETHOXAZOLE AND TRIMETHOPRIM [Concomitant]
  46. MEGESTROL ACETATE [Concomitant]
  47. RENAL CAPS SOFTGEL [Concomitant]
  48. CLONAZEPAM [Concomitant]
  49. PROCHLORPERAZINE [Concomitant]
  50. ACYCLOVIR [Concomitant]
  51. TEMAZEPAM [Concomitant]
  52. TRAMDOL HCL [Concomitant]
  53. PEG 3350 ELECTROLYTE SOLUTION [Concomitant]
  54. AMMONIUM LACTATE [Concomitant]
  55. LEXAPRO [Concomitant]
  56. SERTRALINE HCL [Concomitant]
  57. NIFEDICAL [Concomitant]
  58. PROCARDIA [Concomitant]
  59. CATAPRES TTS 3 PATCH [Concomitant]
  60. PROMETHAZINE [Concomitant]
  61. KLOR-CON [Concomitant]
  62. ZOCOR [Concomitant]
  63. LIPITOR [Concomitant]
  64. SOTALOL HCL [Concomitant]
  65. IMDUR [Concomitant]
  66. HYDRALAZINE HCL [Concomitant]
  67. BUMEX [Concomitant]
  68. COZAAR [Concomitant]
  69. GLYCOLAX [Concomitant]
  70. PROTONIX [Concomitant]
  71. POTASSIUM [Concomitant]
  72. NITROSTAT [Concomitant]
  73. ZOCOR [Concomitant]

REACTIONS (11)
  - ATRIAL FIBRILLATION [None]
  - CARDIAC FAILURE [None]
  - CARDIOMYOPATHY [None]
  - ECONOMIC PROBLEM [None]
  - GASTROOESOPHAGEAL REFLUX DISEASE [None]
  - HYPERLIPIDAEMIA [None]
  - HYPERTENSION [None]
  - INJURY [None]
  - RENAL FAILURE [None]
  - SURGERY [None]
  - UNEVALUABLE EVENT [None]
